FAERS Safety Report 5541860-0 (Version None)
Quarter: 2007Q4

REPORT INFORMATION
  Report Type: 
  Country: None (occurrence: None)
  Receive Date: 20071210
  Receipt Date: 20071126
  Transmission Date: 20080405
  Serious: Yes (Hospitalization)
  Sender: FDA-Public Use
  Company Number: ES-ROCHE-395681

PATIENT
  Age: 44 Year
  Sex: Male
  Weight: 64.7 kg

DRUGS (7)
  1. MYCOPHENOLATE MOFETIL [Suspect]
     Route: 048
     Dates: start: 20031023, end: 20041202
  2. DACLIZUMAB [Suspect]
     Route: 042
     Dates: start: 20031022, end: 20031218
  3. CYCLOSPORINE [Suspect]
     Route: 048
     Dates: start: 20031022, end: 20041202
  4. CYCLOSPORINE [Suspect]
     Route: 048
  5. STEROID NOS [Suspect]
     Route: 048
     Dates: start: 20031023, end: 20041202
  6. PHOSPHATE [Concomitant]
     Dates: start: 20031105, end: 20041213
  7. OMEPRAZOLE [Concomitant]
     Dates: start: 20031026

REACTIONS (5)
  - ABDOMINAL PAIN [None]
  - ASTHENIA [None]
  - RENAL IMPAIRMENT [None]
  - VOMITING [None]
  - WEIGHT DECREASED [None]
